FAERS Safety Report 15612474 (Version 2)
Quarter: 2018Q4

REPORT INFORMATION
  Report Type: Spontaneous
  Country: JP (occurrence: JP)
  Receive Date: 20181113
  Receipt Date: 20181217
  Transmission Date: 20190205
  Serious: Yes (Death)
  Sender: FDA-Public Use
  Company Number: JP-ACTELION-A-CH2018-181761

PATIENT
  Age: 46 Year
  Sex: Male
  Weight: 42 kg

DRUGS (26)
  1. UPTRAVI [Suspect]
     Active Substance: SELEXIPAG
     Dosage: 0.4 MCG, BID
     Route: 048
     Dates: start: 20181003, end: 20181017
  2. GASMOTIN [Concomitant]
     Active Substance: MOSAPRIDE CITRATE
     Dosage: 15 MG, QD
     Dates: end: 20181101
  3. PARACETAMOL [Concomitant]
     Active Substance: ACETAMINOPHEN
     Dosage: UNK
     Dates: end: 20181101
  4. PROSTANDIN [Concomitant]
     Dosage: UNK
     Dates: end: 20181101
  5. DEQUALINIUM CHLORIDE [Concomitant]
     Active Substance: DEQUALINIUM CHLORIDE
     Dosage: UNK
     Dates: end: 20181101
  6. MUCOSOLVAN [Concomitant]
     Active Substance: AMBROXOL HYDROCHLORIDE
     Dosage: 45 MG, QD
     Dates: end: 20181101
  7. TALION [Concomitant]
     Dosage: 20 MG, QD
     Dates: end: 20181101
  8. GEBEN [Concomitant]
     Active Substance: SILVER SULFADIAZINE
     Dosage: UNK
     Dates: end: 20181101
  9. UPTRAVI [Suspect]
     Active Substance: SELEXIPAG
     Dosage: 0.6 MCG, BID
     Route: 048
     Dates: start: 20181018, end: 20181024
  10. UPTRAVI [Suspect]
     Active Substance: SELEXIPAG
     Indication: PULMONARY ARTERIAL HYPERTENSION
     Dosage: 0.8 MCG, BID
     Route: 048
     Dates: start: 20181025, end: 20181103
  11. OPSUMIT [Concomitant]
     Active Substance: MACITENTAN
     Indication: PULMONARY ARTERIAL HYPERTENSION
     Dosage: UNK
     Dates: end: 20181101
  12. BIOFERMIN R [Concomitant]
     Active Substance: BACILLUS SUBTILIS\LACTOBACILLUS ACIDOPHILUS\STREPTOCOCCUS FAECAIS
     Dosage: UNK
     Dates: end: 20181101
  13. UPTRAVI [Suspect]
     Active Substance: SELEXIPAG
     Dosage: 0.2 MCG, BID
     Route: 048
     Dates: start: 20180926, end: 20181002
  14. MEDICON [Concomitant]
     Active Substance: DEXTROMETHORPHAN HYDROBROMIDE
     Dosage: 90 MG, QD
     Dates: end: 20181101
  15. PREDONINE [Concomitant]
     Active Substance: PREDNISOLONE
     Dosage: 7.5 MG, QD
     Dates: end: 20181101
  16. HIRUDOID [Concomitant]
     Active Substance: GLYCOSAMINOGLYCANS
     Dosage: UNK
     Dates: end: 20181101
  17. FUROSEMIDE. [Concomitant]
     Active Substance: FUROSEMIDE
     Dosage: 10 MG, QD
     Dates: end: 20181101
  18. BAKTAR [Concomitant]
     Active Substance: SULFAMETHOXAZOLE\TRIMETHOPRIM
     Dosage: UNK
     Dates: end: 20181101
  19. REBAMIPIDE [Concomitant]
     Active Substance: REBAMIPIDE
     Dosage: 100 MG, QD
     Dates: end: 20181101
  20. BISONO [Concomitant]
     Active Substance: BISOPROLOL
     Dosage: UNK
     Dates: end: 20181101
  21. VOLIBRIS [Concomitant]
     Active Substance: AMBRISENTAN
     Indication: PULMONARY ARTERIAL HYPERTENSION
     Dosage: 5 MG, QD
     Dates: end: 20181010
  22. LOXOPROFEN NA [Concomitant]
     Active Substance: LOXOPROFEN SODIUM
     Dosage: 60 MG, QD
     Dates: end: 20181010
  23. MIYA-BM [Concomitant]
     Active Substance: CLOSTRIDIUM BUTYRICUM SPORES STRAIN M-55
     Dosage: UNK
     Dates: end: 20181101
  24. ROZEREM [Concomitant]
     Active Substance: RAMELTEON
     Dosage: UNK
     Dates: end: 20181101
  25. MUCODYNE [Concomitant]
     Active Substance: CARBOCYSTEINE
     Dosage: 1500 MG, QD
     Dates: end: 20181101
  26. NEXIUM [Concomitant]
     Active Substance: ESOMEPRAZOLE MAGNESIUM
     Dosage: 20 MG, QD
     Dates: end: 20181101

REACTIONS (2)
  - Condition aggravated [Fatal]
  - Pulmonary arterial hypertension [Fatal]

NARRATIVE: CASE EVENT DATE: 20181103
